FAERS Safety Report 26130580 (Version 1)
Quarter: 2025Q4

REPORT INFORMATION
  Report Type: Spontaneous
  Country: US (occurrence: None)
  Receive Date: 20251205
  Receipt Date: 20251205
  Transmission Date: 20260118
  Serious: Yes (Death)
  Sender: FDA-CTU
  Company Number: None

PATIENT
  Age: 87 Year
  Sex: Female
  Weight: 69.4 kg

DRUGS (1)
  1. PROLIA [Suspect]
     Active Substance: DENOSUMAB
     Dosage: 60MG/ML EVERY 180 DAYS SUBCUTANEOUS?
     Route: 058
     Dates: start: 20230509

REACTIONS (1)
  - Death [None]

NARRATIVE: CASE EVENT DATE: 20251111
